FAERS Safety Report 16718887 (Version 1)
Quarter: 2019Q3

REPORT INFORMATION
  Report Type: Spontaneous
  Country: FR (occurrence: FR)
  Receive Date: 20190820
  Receipt Date: 20190820
  Transmission Date: 20191005
  Serious: Yes (Other)
  Sender: FDA-Public Use
  Company Number: FR-TEVA-2019-FR-1093177

PATIENT
  Age: 83 Year
  Sex: Male

DRUGS (11)
  1. LEVETIRACETAM. [Suspect]
     Active Substance: LEVETIRACETAM
     Indication: EPILEPSY
     Dosage: 2000 MG
     Route: 042
     Dates: end: 20190607
  2. CEFTAZIDIME PENTAHYDRATE [Suspect]
     Active Substance: CEFTAZIDIME
     Indication: PNEUMONIA ASPIRATION
     Dosage: 6 GRAM
     Route: 042
     Dates: start: 20190530, end: 20190605
  3. ACEBUTOLOL (CHLORHYDRATE D) [Concomitant]
     Active Substance: ACEBUTOLOL HYDROCHLORIDE
     Indication: HYPERTENSION
     Dosage: 400 MG
     Route: 048
  4. ENOXAPARINE SODIQUE ((MAMMIFERE/PORC/MUQUEUSE INTESTINALE)) [Concomitant]
     Active Substance: ENOXAPARIN SODIUM
     Dosage: 4000 IU
     Route: 058
  5. PARACETAMOL [Concomitant]
     Active Substance: ACETAMINOPHEN
     Dosage: 1 GRAM
     Route: 048
  6. LANSOPRAZOLE. [Concomitant]
     Active Substance: LANSOPRAZOLE
     Dosage: 15 MG
     Route: 048
  7. VALSARTAN. [Concomitant]
     Active Substance: VALSARTAN
     Dosage: 160 MG
     Route: 048
  8. INSULINE [Concomitant]
     Active Substance: INSULIN NOS
     Dosage: 50 IU
     Route: 058
  9. CEFEPIME (DICHLORHYDRATE DE) MONOHYDRATE [Suspect]
     Active Substance: CEFEPIME HYDROCHLORIDE
     Indication: PNEUMONIA ASPIRATION
     Dosage: 4 GRAM
     Route: 042
     Dates: start: 20190605, end: 20190606
  10. LACTULOSE. [Concomitant]
     Active Substance: LACTULOSE
     Dosage: 20 MG
     Route: 048
  11. PROPOFOL. [Concomitant]
     Active Substance: PROPOFOL
     Route: 042
     Dates: start: 20190604, end: 20190604

REACTIONS (1)
  - Encephalopathy [Recovering/Resolving]

NARRATIVE: CASE EVENT DATE: 20190604
